FAERS Safety Report 13697921 (Version 1)
Quarter: 2017Q2

REPORT INFORMATION
  Report Type: Spontaneous
  Country: US (occurrence: US)
  Receive Date: 20170627
  Receipt Date: 20170627
  Transmission Date: 20170830
  Serious: Yes (Life-Threatening, Hospitalization, Other)
  Sender: FDA-Public Use
  Company Number: None

PATIENT
  Age: 70 Year
  Sex: Male
  Weight: 102.8 kg

DRUGS (1)
  1. AGGRASTAT [Suspect]
     Active Substance: TIROFIBAN HYDROCHLORIDE
     Indication: ACUTE MYOCARDIAL INFARCTION
     Dosage: OTHER DOSE:MG;OTHER FREQUENCY:9.3 ML/HR;?
     Route: 041
     Dates: start: 20170608, end: 20170608

REACTIONS (1)
  - Thrombocytopenia [None]

NARRATIVE: CASE EVENT DATE: 20170609
